FAERS Safety Report 25123691 (Version 1)
Quarter: 2025Q1

REPORT INFORMATION
  Report Type: Spontaneous
  Country: FR (occurrence: FR)
  Receive Date: 20250326
  Receipt Date: 20250326
  Transmission Date: 20250408
  Serious: Yes (Hospitalization, Other)
  Sender: AUROBINDO
  Company Number: FR-AFSSAPS-RS2025000237

PATIENT
  Age: 54 Year
  Sex: Female
  Weight: 36.2 kg

DRUGS (1)
  1. DULOXETINE [Suspect]
     Active Substance: DULOXETINE
     Indication: Anorexia nervosa
     Dosage: 60 MILLIGRAM, ONCE A DAY
     Route: 048
     Dates: start: 2005, end: 202502

REACTIONS (3)
  - Oesophageal adenocarcinoma [Not Recovered/Not Resolved]
  - Dysphagia [Not Recovered/Not Resolved]
  - Oesophagitis [Not Recovered/Not Resolved]

NARRATIVE: CASE EVENT DATE: 20240901
